FAERS Safety Report 20235700 (Version 2)
Quarter: 2022Q4

REPORT INFORMATION
  Report Type: Spontaneous
  Country: US (occurrence: US)
  Receive Date: 20211228
  Receipt Date: 20221007
  Transmission Date: 20230113
  Serious: No
  Sender: FDA-Public Use
  Company Number: US-ASTELLAS-2021US040987

PATIENT
  Sex: Female

DRUGS (2)
  1. XOSPATA [Suspect]
     Active Substance: GILTERITINIB
     Indication: Acute myeloid leukaemia
     Route: 065
  2. XOSPATA [Suspect]
     Active Substance: GILTERITINIB
     Route: 065

REACTIONS (3)
  - Somnolence [Not Recovered/Not Resolved]
  - Nausea [Not Recovered/Not Resolved]
  - Pleural effusion [Not Recovered/Not Resolved]
